FAERS Safety Report 8352806-4 (Version None)
Quarter: 2012Q2

REPORT INFORMATION
  Report Type: 
  Country: None (occurrence: None)
  Receive Date: 20120511
  Receipt Date: 20110224
  Transmission Date: 20120825
  Serious: Yes (Other)
  Sender: FDA-Public Use
  Company Number: US-BAYER-200920303NA

PATIENT
  Age: 49 Year
  Sex: Male
  Weight: 76.364 kg

DRUGS (30)
  1. MAGNEVIST [Suspect]
     Indication: NUCLEAR MAGNETIC RESONANCE IMAGING
     Route: 042
     Dates: start: 19990624, end: 19990624
  2. MAGNEVIST [Suspect]
     Route: 042
     Dates: start: 20020828, end: 20020828
  3. OPTIMARK [Suspect]
     Indication: NUCLEAR MAGNETIC RESONANCE IMAGING
     Route: 042
     Dates: start: 20041014, end: 20041014
  4. ALPRAZOLAM [Concomitant]
  5. ZOLPIDEM [Concomitant]
  6. FLUOXETINE [Concomitant]
  7. MAGNEVIST [Suspect]
     Dates: start: 20020927, end: 20020927
  8. OXYCODONE HCL [Concomitant]
  9. AZITHROMYCIN [Concomitant]
  10. MAGNEVIST [Suspect]
     Dates: start: 20021230, end: 20021230
  11. PROZAC [Concomitant]
  12. SERTRALINE HYDROCHLORIDE [Concomitant]
  13. FUROSEMIDE [Concomitant]
  14. LIPITOR [Concomitant]
  15. MAGNEVIST [Suspect]
     Route: 042
     Dates: start: 20020903, end: 20020903
  16. DIAZEPAM [Concomitant]
  17. VISIPAQUE [Concomitant]
     Indication: ARTERIOGRAM CORONARY
     Dates: start: 20061115, end: 20061115
  18. OPTIMARK [Suspect]
     Dates: start: 20051017, end: 20051017
  19. PROSCAR [Concomitant]
  20. CIPROFLOXACIN [Concomitant]
  21. GADOLINIUM IN UNSPECIFIED DRUG [Suspect]
     Dosage: UNK
     Dates: start: 20020927
  22. TRAZODONE HCL [Concomitant]
  23. HYDROCHLOROTHIAZIDE [Concomitant]
  24. MEPERIDINE HCL [Concomitant]
  25. KETOCONAZOLE [Concomitant]
  26. GADOLINIUM IN UNSPECIFIED DRUG [Suspect]
     Dosage: 1980'S
  27. PRILOSEC [Concomitant]
  28. PROCHLORPERAZINE [Concomitant]
  29. DEXAMETHASONE [Concomitant]
  30. HYDROMORPHONE HCL [Concomitant]

REACTIONS (26)
  - MYALGIA [None]
  - DYSPNOEA [None]
  - MOBILITY DECREASED [None]
  - MUSCLE TIGHTNESS [None]
  - DEFORMITY [None]
  - SKIN HYPERPIGMENTATION [None]
  - PAIN [None]
  - HYPOAESTHESIA [None]
  - PRURITUS GENERALISED [None]
  - ARTHRALGIA [None]
  - JOINT RANGE OF MOTION DECREASED [None]
  - PRURITUS [None]
  - EXERCISE TOLERANCE DECREASED [None]
  - ASTHENIA [None]
  - MUSCULAR WEAKNESS [None]
  - SKIN TIGHTNESS [None]
  - FATIGUE [None]
  - GAIT DISTURBANCE [None]
  - SKIN INDURATION [None]
  - PAIN IN EXTREMITY [None]
  - NEPHROGENIC SYSTEMIC FIBROSIS [None]
  - SKIN HYPERTROPHY [None]
  - MUSCULOSKELETAL STIFFNESS [None]
  - MUSCLE SPASMS [None]
  - SKIN DISCOLOURATION [None]
  - JOINT SWELLING [None]
